FAERS Safety Report 6441932-2 (Version None)
Quarter: 2009Q4

REPORT INFORMATION
  Report Type: 
  Country: None (occurrence: None)
  Receive Date: 20091112
  Receipt Date: 20091029
  Transmission Date: 20100525
  Serious: Yes (Other)
  Sender: FDA-Public Use
  Company Number: ALL1-2009-03418

PATIENT
  Sex: Female

DRUGS (1)
  1. ADDERALL XR 10 [Suspect]
     Indication: ATTENTION DEFICIT/HYPERACTIVITY DISORDER
     Dosage: 25 MG,  1X/DAY:QD, ORAL
     Route: 048
     Dates: start: 20091001

REACTIONS (2)
  - DYSPHAGIA [None]
  - JAW FRACTURE [None]
